FAERS Safety Report 9052456 (Version 1)
Quarter: 2013Q1

REPORT INFORMATION
  Report Type: Spontaneous
  Country: US (occurrence: US)
  Receive Date: 20130207
  Receipt Date: 20130207
  Transmission Date: 20140127
  Serious: Yes (Hospitalization)
  Sender: FDA-Public Use
  Company Number: US-SANOFI-AVENTIS-2013SA007246

PATIENT
  Age: 46 Year
  Sex: Male

DRUGS (2)
  1. ZALTRAP [Suspect]
     Route: 041
     Dates: start: 20121112, end: 20121112
  2. IRINOTECAN [Suspect]
     Route: 042
     Dates: start: 20121112, end: 20121112

REACTIONS (2)
  - Respiratory failure [Unknown]
  - Dyspnoea [Recovered/Resolved]
